FAERS Safety Report 12345864 (Version 1)
Quarter: 2016Q2

REPORT INFORMATION
  Report Type: Spontaneous
  Country: US (occurrence: None)
  Receive Date: 20160506
  Receipt Date: 20160506
  Transmission Date: 20160815
  Serious: No
  Sender: FDA-Public Use
  Company Number: None

PATIENT
  Age: 75 Year
  Sex: Male
  Weight: 85 kg

DRUGS (1)
  1. GEMCITABINE [Suspect]
     Active Substance: GEMCITABINE\GEMCITABINE HYDROCHLORIDE
     Dosage: MG PO
     Route: 048
     Dates: start: 20150402, end: 20150402

REACTIONS (2)
  - Urticaria [None]
  - Face oedema [None]

NARRATIVE: CASE EVENT DATE: 20150402
